FAERS Safety Report 9204315 (Version 6)
Quarter: 2013Q4

REPORT INFORMATION
  Report Type: Spontaneous
  Country: CA (occurrence: CA)
  Receive Date: 20130402
  Receipt Date: 20131112
  Transmission Date: 20140711
  Serious: Yes (Life-Threatening, Hospitalization)
  Sender: FDA-Public Use
  Company Number: CA-ROCHE-1208818

PATIENT
  Age: 60 Year
  Sex: Male

DRUGS (8)
  1. XOLAIR [Suspect]
     Indication: ASTHMA
     Route: 058
     Dates: start: 20120928
  2. XOLAIR [Suspect]
     Indication: CHRONIC OBSTRUCTIVE PULMONARY DISEASE
     Route: 058
     Dates: start: 20121019
  3. VENTOLINE [Concomitant]
  4. ATROVENT [Concomitant]
  5. SYMBICORT [Concomitant]
  6. SINGULAIR [Concomitant]
  7. UNIPHYL [Concomitant]
  8. PREDNISONE [Concomitant]

REACTIONS (7)
  - Pulmonary embolism [Recovered/Resolved with Sequelae]
  - Pulmonary infarction [Recovered/Resolved with Sequelae]
  - Lung abscess [Recovered/Resolved with Sequelae]
  - Dyspnoea [Unknown]
  - Muscular weakness [Unknown]
  - Respiratory disorder [Unknown]
  - Drug ineffective [Unknown]
